FAERS Safety Report 7538512-4 (Version None)
Quarter: 2011Q2

REPORT INFORMATION
  Report Type: 
  Country: None (occurrence: None)
  Receive Date: 20110610
  Receipt Date: 20110601
  Transmission Date: 20111010
  Serious: Yes (Hospitalization)
  Sender: FDA-Public Use
  Company Number: US-BIOGENIDEC-2011BI000930

PATIENT
  Age: 49 Year
  Sex: Female
  Weight: 55 kg

DRUGS (1)
  1. TYSABRI [Suspect]
     Indication: MULTIPLE SCLEROSIS
     Route: 042
     Dates: start: 20080219

REACTIONS (7)
  - INSOMNIA [None]
  - HEADACHE [None]
  - FALL [None]
  - RESTLESS LEGS SYNDROME [None]
  - BLEPHAROSPASM [None]
  - LOWER LIMB FRACTURE [None]
  - STRESS [None]
